FAERS Safety Report 8260270-9 (Version None)
Quarter: 2012Q2

REPORT INFORMATION
  Report Type: 
  Country: None (occurrence: None)
  Receive Date: 20120404
  Receipt Date: 20120321
  Transmission Date: 20120825
  Serious: Yes (Hospitalization)
  Sender: FDA-Public Use
  Company Number: JP-ROCHE-1007413

PATIENT
  Sex: Female
  Weight: 10 kg

DRUGS (5)
  1. ALBUMIN (HUMAN) [Concomitant]
     Indication: HYPOALBUMINAEMIA
     Dosage: DOSAGE IS UNCERTAIN.
     Route: 042
     Dates: start: 20110216, end: 20110217
  2. ACETAMINOPHEN [Concomitant]
     Indication: PYREXIA
     Dosage: DOSAGE IS UNCERTAIN.
     Route: 054
     Dates: start: 20110215, end: 20110215
  3. FLOMOX [Concomitant]
     Indication: PYREXIA
     Dosage: DOSAGE IS UNCERTAIN.
     Route: 048
     Dates: start: 20110209
  4. ROCEPHIN [Suspect]
     Indication: UPPER RESPIRATORY TRACT INFLAMMATION
     Dosage: DOSAGE IS UNCERTAIN.
     Route: 041
     Dates: start: 20110214, end: 20110218
  5. CARBENIN [Concomitant]
     Indication: UPPER RESPIRATORY TRACT INFLAMMATION
     Route: 041
     Dates: start: 20110216, end: 20110224

REACTIONS (2)
  - TUBULOINTERSTITIAL NEPHRITIS [None]
  - RENAL FAILURE ACUTE [None]
